FAERS Safety Report 6614569-X (Version None)
Quarter: 2010Q1

REPORT INFORMATION
  Report Type: 
  Country: None (occurrence: None)
  Receive Date: 20100304
  Receipt Date: 20100304
  Transmission Date: 20100710
  Serious: Yes (Life-Threatening, Hospitalization)
  Sender: FDA-Public Use
  Company Number: None

PATIENT
  Age: 57 Year
  Sex: Female
  Weight: 56.6996 kg

DRUGS (2)
  1. FOSAMAX [Suspect]
     Indication: OSTEOPENIA
     Dates: start: 20030101, end: 20060101
  2. BONIVA [Suspect]
     Dates: start: 20060101, end: 20090101

REACTIONS (4)
  - FEMUR FRACTURE [None]
  - GAIT DISTURBANCE [None]
  - PAIN IN EXTREMITY [None]
  - PATHOLOGICAL FRACTURE [None]
